FAERS Safety Report 5499315-8 (Version None)
Quarter: 2007Q4

REPORT INFORMATION
  Report Type: 
  Country: None (occurrence: None)
  Receive Date: 20071026
  Receipt Date: 20071019
  Transmission Date: 20080405
  Serious: Yes (Death, Hospitalization, Other)
  Sender: FDA-Public Use
  Company Number: BR-BRISTOL-MYERS SQUIBB COMPANY-13950464

PATIENT
  Age: 27 Year
  Sex: Female

DRUGS (4)
  1. ATAZANAVIR SULFATE [Suspect]
     Indication: HIV INFECTION
  2. EFAVIRENZ [Concomitant]
  3. ZIDOVUDINE [Concomitant]
  4. LAMIVUDINE [Concomitant]

REACTIONS (4)
  - CHOLELITHIASIS [None]
  - ENCEPHALOPATHY [None]
  - HEPATITIS ACUTE [None]
  - PREGNANCY [None]
